FAERS Safety Report 21244158 (Version 1)
Quarter: 2022Q3

REPORT INFORMATION
  Report Type: Spontaneous
  Country: US (occurrence: None)
  Receive Date: 20220822
  Receipt Date: 20220822
  Transmission Date: 20221027
  Serious: No
  Sender: FDA-Public Use
  Company Number: None

PATIENT
  Age: 27 Year
  Sex: Female

DRUGS (1)
  1. ACTEMRA [Suspect]
     Active Substance: TOCILIZUMAB
     Indication: Rheumatoid arthritis
     Dosage: 162 MG/0.9ML  SUBCUTANEOUS??INJECT 162 MG INTO THE SKIN ONCE A WEEK.? ?
     Route: 058
     Dates: start: 20190820

REACTIONS (5)
  - Rheumatoid arthritis [None]
  - Impaired quality of life [None]
  - Pain [None]
  - Therapy interrupted [None]
  - Suspected product quality issue [None]

NARRATIVE: CASE EVENT DATE: 20220819
